FAERS Safety Report 19847532 (Version 4)
Quarter: 2021Q4

REPORT INFORMATION
  Report Type: Spontaneous
  Country: US (occurrence: US)
  Receive Date: 20210917
  Receipt Date: 20211224
  Transmission Date: 20220303
  Serious: Yes (Other)
  Sender: FDA-Public Use
  Company Number: US-BRISTOL-MYERS SQUIBB COMPANY-BMS-2021-090292

PATIENT
  Age: 80 Year
  Sex: Male

DRUGS (2)
  1. SPRYCEL [Suspect]
     Active Substance: DASATINIB
     Indication: Chronic myeloid leukaemia
     Dosage: UNK
     Route: 048
  2. SPRYCEL [Suspect]
     Active Substance: DASATINIB
     Dosage: 50 MILLIGRAM, QD
     Route: 048
     Dates: start: 20161026

REACTIONS (10)
  - Cataract [Unknown]
  - Renal impairment [Unknown]
  - Pulmonary oedema [Not Recovered/Not Resolved]
  - Liver disorder [Unknown]
  - Anal cyst [Unknown]
  - Anaemia [Unknown]
  - Blood pressure systolic increased [Unknown]
  - Arthritis [Not Recovered/Not Resolved]
  - Heart rate irregular [Not Recovered/Not Resolved]
  - Liver function test increased [Recovered/Resolved]
